FAERS Safety Report 20357167 (Version 1)
Quarter: 2022Q1

REPORT INFORMATION
  Report Type: Spontaneous
  Country: US (occurrence: US)
  Receive Date: 20220120
  Receipt Date: 20220120
  Transmission Date: 20220423
  Serious: Yes (Hospitalization, Other)
  Sender: FDA-Public Use
  Company Number: US-SA-SAC20220118000262

PATIENT
  Age: 86 Year
  Sex: Female
  Weight: 58.957 kg

DRUGS (10)
  1. PLAVIX [Suspect]
     Active Substance: CLOPIDOGREL BISULFATE
  2. METHENAMINE HIPPURATE [Concomitant]
     Active Substance: METHENAMINE HIPPURATE
  3. ASPIRIN [Concomitant]
     Active Substance: ASPIRIN
  4. PREDNISONE [Concomitant]
     Active Substance: PREDNISONE
  5. DOXYCYCLINE [Concomitant]
     Active Substance: DOXYCYCLINE
  6. NYSTATIN [Concomitant]
     Active Substance: NYSTATIN
  7. KAOPECTATE [ATTAPULGITE] [Concomitant]
  8. LIDOCAINE [Concomitant]
     Active Substance: LIDOCAINE
  9. SILADRYL [Concomitant]
  10. FLUTICASONE PROPIONATE [Concomitant]
     Active Substance: FLUTICASONE PROPIONATE

REACTIONS (8)
  - Shock [Unknown]
  - Hypersensitivity [Unknown]
  - Peripheral swelling [Unknown]
  - Rash papular [Unknown]
  - Paraesthesia [Unknown]
  - Nervous system disorder [Unknown]
  - Crying [Unknown]
  - Unevaluable event [Unknown]
